FAERS Safety Report 13815391 (Version 1)
Quarter: 2017Q3

REPORT INFORMATION
  Report Type: Spontaneous
  Country: FI (occurrence: FI)
  Receive Date: 20170731
  Receipt Date: 20170731
  Transmission Date: 20171127
  Serious: Yes (Hospitalization)
  Sender: FDA-Public Use
  Company Number: FI-AMGEN-FINSP2017113400

PATIENT
  Age: 69 Year
  Sex: Female

DRUGS (5)
  1. SYMBICORT [Concomitant]
     Active Substance: BUDESONIDE\FORMOTEROL FUMARATE DIHYDRATE
     Route: 055
  2. VENTOLINE [Concomitant]
     Active Substance: ALBUTEROL
     Route: 055
  3. DITRIM DUPLO [Concomitant]
     Active Substance: SULFADIAZINE\TRIMETHOPRIM
     Dosage: 2 DF, QD
     Route: 048
  4. DYMISTA [Concomitant]
     Active Substance: AZELASTINE HYDROCHLORIDE\FLUTICASONE PROPIONATE
     Dosage: UNK
     Route: 045
     Dates: start: 201608
  5. PROLIA [Suspect]
     Active Substance: DENOSUMAB
     Indication: OSTEOPOROSIS
     Dosage: UNK
     Route: 058
     Dates: start: 201605, end: 201707

REACTIONS (7)
  - Pain in jaw [Unknown]
  - Oedema peripheral [Unknown]
  - Rash [Unknown]
  - Pain in extremity [Unknown]
  - Toothache [Unknown]
  - Sinusitis [Unknown]
  - Face oedema [Unknown]

NARRATIVE: CASE EVENT DATE: 20170612
